FAERS Safety Report 19716567 (Version 1)
Quarter: 2021Q3

REPORT INFORMATION
  Report Type: Spontaneous
  Country: US (occurrence: US)
  Receive Date: 20210819
  Receipt Date: 20210819
  Transmission Date: 20211014
  Serious: Yes (Other)
  Sender: FDA-Public Use
  Company Number: US-SUN PHARMACEUTICAL INDUSTRIES LTD-2021R1-308162

PATIENT

DRUGS (1)
  1. FLECAINIDE ACETATE. [Suspect]
     Active Substance: FLECAINIDE ACETATE
     Indication: SUPRAVENTRICULAR TACHYCARDIA
     Dosage: UNK
     Route: 064

REACTIONS (4)
  - Ventricular extrasystoles [Recovered/Resolved]
  - Foetal exposure during pregnancy [Unknown]
  - Bradycardia neonatal [Recovered/Resolved]
  - Toxicity to various agents [Unknown]
